FAERS Safety Report 25775302 (Version 1)
Quarter: 2025Q3

REPORT INFORMATION
  Report Type: Spontaneous
  Country: BN (occurrence: BN)
  Receive Date: 20250909
  Receipt Date: 20250909
  Transmission Date: 20251021
  Serious: Yes (Death, Hospitalization, Other)
  Sender: BOEHRINGER INGELHEIM
  Company Number: BN-BoehringerIngelheim-2025-BI-091339

PATIENT
  Age: 79 Year
  Sex: Female

DRUGS (1)
  1. PRADAXA [Suspect]
     Active Substance: DABIGATRAN ETEXILATE MESYLATE
     Indication: Atrial fibrillation
     Dates: start: 202507

REACTIONS (4)
  - Gangrene [Fatal]
  - Sepsis [Unknown]
  - Gastrointestinal haemorrhage [Recovering/Resolving]
  - Gastric ulcer haemorrhage [Recovering/Resolving]
